FAERS Safety Report 7789882-3 (Version None)
Quarter: 2011Q3

REPORT INFORMATION
  Report Type: 
  Country: None (occurrence: None)
  Receive Date: 20110930
  Receipt Date: 20110318
  Transmission Date: 20111222
  Serious: No
  Sender: FDA-Public Use
  Company Number: US-ASTRAZENECA-2010SE08319

PATIENT
  Age: 69 Year
  Sex: Female
  Weight: 56.7 kg

DRUGS (7)
  1. ARIMIDEX [Suspect]
     Route: 048
  2. ARIMIDEX [Suspect]
     Indication: BREAST CANCER
     Route: 048
     Dates: start: 20070101
  3. SYNTHROID [Concomitant]
     Indication: HYPOTHYROIDISM
     Route: 048
  4. FINACEA [Concomitant]
     Indication: ROSACEA
     Dosage: DAILY
     Route: 061
  5. LIDOCAINE [Suspect]
     Route: 065
  6. METOPROLOL TARTRATE [Concomitant]
  7. MULTIVITAMIN [Concomitant]
     Dosage: DAILY
     Route: 048

REACTIONS (4)
  - VENTRICULAR EXTRASYSTOLES [None]
  - SUPRAVENTRICULAR EXTRASYSTOLES [None]
  - CHEST PAIN [None]
  - PANCREATITIS CHRONIC [None]
